FAERS Safety Report 8496903-1 (Version None)
Quarter: 2012Q3

REPORT INFORMATION
  Report Type: 
  Country: None (occurrence: None)
  Receive Date: 20120709
  Receipt Date: 20120628
  Transmission Date: 20120928
  Serious: Yes (Hospitalization)
  Sender: FDA-Public Use
  Company Number: JP-ELI_LILLY_AND_COMPANY-JP201202006110

PATIENT
  Age: 72 Year
  Sex: Female

DRUGS (3)
  1. FORTEO [Suspect]
     Dosage: UNK
     Route: 058
     Dates: end: 20120427
  2. FORTEO [Suspect]
     Dosage: UNK
     Route: 058
     Dates: start: 20120507
  3. FORTEO [Suspect]
     Indication: BONE DENSITY DECREASED
     Dosage: UNK, EACH EVENING
     Route: 058
     Dates: start: 20120203

REACTIONS (9)
  - ABDOMINAL DISCOMFORT [None]
  - MYALGIA [None]
  - ODYNOPHAGIA [None]
  - PHARYNGEAL OEDEMA [None]
  - DYSPHONIA [None]
  - PYELONEPHRITIS ACUTE [None]
  - PYREXIA [None]
  - NASOPHARYNGITIS [None]
  - POSTURE ABNORMAL [None]
